FAERS Safety Report 20178487 (Version 1)
Quarter: 2021Q4

REPORT INFORMATION
  Report Type: Report from Study
  Country: JP (occurrence: JP)
  Receive Date: 20211214
  Receipt Date: 20211214
  Transmission Date: 20220303
  Serious: Yes (Disabling, Congenital Anomaly, Other)
  Sender: FDA-Public Use
  Company Number: JP-ABBVIE-21K-087-4193379-00

PATIENT
  Sex: Female

DRUGS (4)
  1. NORVIR [Suspect]
     Active Substance: RITONAVIR
     Indication: Maternal exposure timing unspecified
     Route: 064
  2. RETROVIR [Suspect]
     Active Substance: ZIDOVUDINE
     Indication: Maternal exposure timing unspecified
     Route: 064
  3. COMBIVIR [Suspect]
     Active Substance: LAMIVUDINE\ZIDOVUDINE
     Indication: Maternal exposure timing unspecified
     Route: 064
  4. PREZISTA [Suspect]
     Active Substance: DARUNAVIR ETHANOLATE
     Indication: Maternal exposure timing unspecified
     Route: 064

REACTIONS (6)
  - Periventricular leukomalacia [Unknown]
  - Cerebral palsy [Unknown]
  - Intellectual disability [Unknown]
  - Epilepsy [Unknown]
  - Head circumference abnormal [Unknown]
  - Foetal exposure during pregnancy [Unknown]
